FAERS Safety Report 6112733-X (Version None)
Quarter: 2009Q1

REPORT INFORMATION
  Report Type: 
  Country: None (occurrence: None)
  Receive Date: 20090312
  Receipt Date: 20090303
  Transmission Date: 20090719
  Serious: Yes (Other)
  Sender: FDA-Public Use
  Company Number: US-AMGEN-QUU335478

PATIENT
  Sex: Female
  Weight: 85.9 kg

DRUGS (4)
  1. ENBREL [Suspect]
     Indication: RHEUMATOID ARTHRITIS
     Route: 058
     Dates: start: 20010801, end: 20090218
  2. METOPROLOL [Concomitant]
  3. CYCLOBENZAPRINE [Concomitant]
  4. DILTIAZEM [Concomitant]

REACTIONS (1)
  - DEMYELINATION [None]
